FAERS Safety Report 10329154 (Version 3)
Quarter: 2017Q2

REPORT INFORMATION
  Report Type: Report from Study
  Country: None (occurrence: JP)
  Receive Date: 20140721
  Receipt Date: 20170623
  Transmission Date: 20170829
  Serious: Yes (Hospitalization, Other)
  Sender: FDA-Public Use
  Company Number: JP-ABBVIE-14P-087-1258068-00

PATIENT
  Age: 26 Year
  Sex: Female
  Weight: 49.9 kg

DRUGS (9)
  1. HUMIRA [Suspect]
     Active Substance: ADALIMUMAB
     Indication: COLITIS ULCERATIVE
     Route: 058
     Dates: start: 20140627, end: 20140627
  2. AZATHIOPRINE. [Concomitant]
     Active Substance: AZATHIOPRINE
     Indication: COLITIS ULCERATIVE
     Route: 048
     Dates: start: 20140623
  3. PREDNISOLONE. [Concomitant]
     Active Substance: PREDNISOLONE
  4. PREDNISOLONE. [Concomitant]
     Active Substance: PREDNISOLONE
     Indication: COLITIS ULCERATIVE
     Route: 048
     Dates: end: 20140611
  5. CEFTRIAXONE. [Suspect]
     Active Substance: CEFTRIAXONE
     Indication: PRODUCT USED FOR UNKNOWN INDICATION
     Route: 065
  6. BIFIDOBACTERIUM [Concomitant]
     Active Substance: BIFIDOBACTERIUM LONGUM
     Indication: COLITIS ULCERATIVE
     Dosage: 3 DOSAGE FORMS
     Route: 048
  7. SODIUM FERROUS CITRATE [Concomitant]
     Active Substance: SODIUM FERROUS CITRATE
     Indication: PRODUCT USED FOR UNKNOWN INDICATION
     Route: 048
  8. MESALAZINE [Concomitant]
     Active Substance: MESALAMINE
     Indication: COLITIS ULCERATIVE
     Route: 048
     Dates: start: 20130924, end: 20140620
  9. SALAZOSULFAPYRIDINE [Concomitant]
     Active Substance: SULFASALAZINE
     Indication: COLITIS ULCERATIVE
     Route: 048
     Dates: start: 20140623

REACTIONS (8)
  - Cough [Recovering/Resolving]
  - Bronchial wall thickening [Unknown]
  - Drug ineffective [Unknown]
  - Lymphoma [Unknown]
  - White blood cell count increased [Unknown]
  - C-reactive protein increased [Unknown]
  - Pyrexia [Recovering/Resolving]
  - Lymphadenopathy [Unknown]

NARRATIVE: CASE EVENT DATE: 20140628
